FAERS Safety Report 7898550-9 (Version None)
Quarter: 2011Q4

REPORT INFORMATION
  Report Type: 
  Country: None (occurrence: None)
  Receive Date: 20111107
  Receipt Date: 20111104
  Transmission Date: 20120403
  Serious: Yes (Hospitalization)
  Sender: FDA-Public Use
  Company Number: CA-CEPHALON-2011005705

PATIENT
  Sex: Male
  Weight: 82 kg

DRUGS (2)
  1. RITUXIMAB [Concomitant]
     Indication: MANTLE CELL LYMPHOMA
     Route: 042
     Dates: start: 20110616
  2. BENDAMUSTINE HCL [Suspect]
     Indication: MANTLE CELL LYMPHOMA
     Route: 042
     Dates: start: 20110616

REACTIONS (1)
  - DEVICE RELATED INFECTION [None]
